FAERS Safety Report 8396851-1 (Version None)
Quarter: 2012Q2

REPORT INFORMATION
  Report Type: 
  Country: None (occurrence: None)
  Receive Date: 20120530
  Receipt Date: 20120516
  Transmission Date: 20120825
  Serious: No
  Sender: FDA-Public Use
  Company Number: US-ASTRAZENECA-2012SE31459

PATIENT
  Age: 52 Year
  Sex: Male

DRUGS (23)
  1. LEXAPRO [Suspect]
     Route: 048
     Dates: start: 20111201
  2. DEPAKOTE [Suspect]
     Indication: DEPRESSION
     Route: 048
     Dates: start: 20080101, end: 20080402
  3. LEXAPRO [Suspect]
     Indication: OBSESSIVE-COMPULSIVE DISORDER
     Route: 048
     Dates: start: 20080601, end: 20110701
  4. LEXAPRO [Suspect]
     Route: 048
  5. DEPAKOTE [Suspect]
     Indication: BIPOLAR DISORDER
     Route: 048
     Dates: start: 20080101, end: 20080402
  6. DEPAKOTE [Suspect]
     Route: 048
  7. SEROQUEL [Suspect]
     Indication: DEPRESSION
     Route: 048
     Dates: start: 20080501, end: 20090801
  8. LEXAPRO [Suspect]
     Route: 048
     Dates: start: 20111201
  9. SEROQUEL [Suspect]
     Indication: BIPOLAR DISORDER
     Route: 048
     Dates: start: 20080501, end: 20090801
  10. SEROQUEL [Suspect]
     Route: 048
     Dates: start: 20090801, end: 20100201
  11. LEXAPRO [Suspect]
     Route: 048
     Dates: start: 20110701
  12. LEXAPRO [Suspect]
     Route: 048
     Dates: start: 20110701
  13. DEPAKOTE [Suspect]
     Route: 048
     Dates: start: 20100403, end: 20100415
  14. DEPAKOTE [Suspect]
     Route: 048
  15. SYNTHROID [Concomitant]
     Indication: HYPOTHYROIDISM
  16. SEROQUEL [Suspect]
     Route: 048
     Dates: start: 20100201, end: 20100302
  17. LEXAPRO [Suspect]
     Route: 048
  18. LEXAPRO [Suspect]
     Route: 048
  19. DEPAKOTE [Suspect]
     Route: 048
     Dates: start: 20100403, end: 20100415
  20. SEROQUEL [Suspect]
     Route: 048
     Dates: start: 20090801, end: 20100201
  21. SEROQUEL [Suspect]
     Route: 048
     Dates: start: 20100201, end: 20100302
  22. LEXAPRO [Suspect]
     Indication: DEPRESSION
     Route: 048
     Dates: start: 20080601, end: 20110701
  23. LEXAPRO [Suspect]
     Route: 048

REACTIONS (2)
  - SOMNOLENCE [None]
  - TRISMUS [None]
